FAERS Safety Report 12956009 (Version 2)
Quarter: 2016Q4

REPORT INFORMATION
  Report Type: Spontaneous
  Country: AU (occurrence: AU)
  Receive Date: 20161118
  Receipt Date: 20161201
  Transmission Date: 20170207
  Serious: Yes (Hospitalization, Other)
  Sender: FDA-Public Use
  Company Number: AU-AMGEN-AUSSP2016161999

PATIENT
  Age: 73 Year
  Sex: Male

DRUGS (1)
  1. XGEVA [Suspect]
     Active Substance: DENOSUMAB
     Indication: METASTASES TO BONE
     Dosage: 120 MG, Q4WK TO Q6WK
     Route: 065
     Dates: start: 20130806

REACTIONS (2)
  - Acute myocardial infarction [Unknown]
  - Hypocalcaemia [Unknown]
